FAERS Safety Report 9424536 (Version 1)
Quarter: 2013Q3

REPORT INFORMATION
  Report Type: Spontaneous
  Country: GB (occurrence: GB)
  Receive Date: 20130729
  Receipt Date: 20130729
  Transmission Date: 20140515
  Serious: Yes (Disabling)
  Sender: FDA-Public Use
  Company Number: GB-ROCHE-1251630

PATIENT
  Age: 56 Year
  Sex: Female
  Weight: 70 kg

DRUGS (7)
  1. NAPROXEN [Suspect]
     Indication: ARTHRALGIA
     Route: 048
     Dates: start: 20130610, end: 20130612
  2. BISACODYL [Concomitant]
     Indication: CONSTIPATION
     Route: 048
  3. TRAMADOL [Concomitant]
     Indication: ARTHRALGIA
     Route: 048
  4. ANASTROZOLE [Concomitant]
     Indication: BREAST CANCER
     Route: 048
     Dates: start: 2011
  5. CARBIDOPA [Concomitant]
     Indication: PARKINSON^S DISEASE
     Route: 048
  6. LEVODOPA [Concomitant]
     Indication: PARKINSON^S DISEASE
     Route: 048
  7. REQUIP [Concomitant]
     Route: 048

REACTIONS (2)
  - Freezing phenomenon [Recovered/Resolved]
  - Hypokinesia [Recovered/Resolved]
